FAERS Safety Report 5556752-0 (Version None)
Quarter: 2007Q4

REPORT INFORMATION
  Report Type: 
  Country: None (occurrence: None)
  Receive Date: 20071128
  Receipt Date: 20070815
  Transmission Date: 20080405
  Serious: Yes (Other)
  Sender: FDA-Public Use
  Company Number: CIP07001812

PATIENT
  Sex: Female

DRUGS (15)
  1. ACTONEL [Suspect]
     Indication: OSTEOPENIA
     Dosage: 35 MG, ONCE WEEKLY
     Dates: start: 20030619, end: 20050101
  2. MELOXICAM [Concomitant]
  3. ATENOLOL [Concomitant]
  4. HYDROCORTISONE-NEOMYCIN-POLYMYXIN B (HYDROCORTISONE, NEOMYCIN, POLYMYX [Concomitant]
  5. WELLBUTRIN [Concomitant]
  6. ESTRADIOL [Concomitant]
  7. ACIPHEX [Concomitant]
  8. MOBIC [Concomitant]
  9. COZAAR [Concomitant]
  10. POTASSIUM (POTASSIUM) [Concomitant]
  11. LASIX [Concomitant]
  12. NORVASC [Concomitant]
  13. ZAROXOLYN [Concomitant]
  14. VIGAMOX [Concomitant]
  15. CRESTOR [Concomitant]

REACTIONS (18)
  - ABSCESS ORAL [None]
  - ANAEMIA OF CHRONIC DISEASE [None]
  - CELLULITIS [None]
  - CONTUSION [None]
  - DENTAL FISTULA [None]
  - FACIAL PAIN [None]
  - HYPOAESTHESIA [None]
  - JAW DISORDER [None]
  - OSTEOMYELITIS [None]
  - OSTEONECROSIS [None]
  - PAIN IN JAW [None]
  - PARAESTHESIA [None]
  - PARAESTHESIA ORAL [None]
  - PRIMARY SEQUESTRUM [None]
  - SCAR [None]
  - SWELLING FACE [None]
  - TOOTH EXTRACTION [None]
  - TOOTHACHE [None]
